FAERS Safety Report 5295774-4 (Version None)
Quarter: 2007Q2

REPORT INFORMATION
  Report Type: 
  Country: None (occurrence: None)
  Receive Date: 20070413
  Receipt Date: 20070402
  Transmission Date: 20071010
  Serious: Yes (Other)
  Sender: FDA-Public Use
  Company Number: PHBS2006BR11650

PATIENT
  Age: 30 Year
  Sex: Female
  Weight: 61 kg

DRUGS (3)
  1. TRILEPTAL [Suspect]
     Indication: CONVULSION
     Dosage: 900 MG/D (0.5-0-1)
     Route: 048
     Dates: start: 20060101
  2. TRILEPTAL [Suspect]
     Dosage: 300 MG, BID
     Route: 048
     Dates: start: 20050101, end: 20060101
  3. METFORMIN [Concomitant]
     Dates: start: 20060101

REACTIONS (5)
  - ABORTION SPONTANEOUS [None]
  - ANTICONVULSANT DRUG LEVEL DECREASED [None]
  - DRUG EXPOSURE DURING PREGNANCY [None]
  - PROGESTERONE ABNORMAL [None]
  - UTERINE DILATION AND CURETTAGE [None]
